FAERS Safety Report 10272796 (Version 1)
Quarter: 2014Q2

REPORT INFORMATION
  Report Type: Spontaneous
  Country: US (occurrence: None)
  Receive Date: 20140630
  Receipt Date: 20140630
  Transmission Date: 20141212
  Serious: Yes (Other)
  Sender: FDA-Public Use
  Company Number: UNT-2014-000730

PATIENT
  Age: 66 Year
  Sex: Female
  Weight: 98 kg

DRUGS (3)
  1. REMODULIN [Suspect]
     Indication: PULMONARY ARTERIAL HYPERTENSION
     Dosage: 0.055 ?G/KG/MIN, CONTINUING, SUBCUTANEOUS
     Route: 058
     Dates: start: 20080408
  2. ADCIRCA (TADALAFIL) [Concomitant]
  3. DIURETICS [Concomitant]

REACTIONS (6)
  - Infusion site pain [None]
  - Infusion site erythema [None]
  - Drug dose omission [None]
  - Device dislocation [None]
  - Dyspnoea [None]
  - Pallor [None]
